FAERS Safety Report 8561069 (Version 17)
Quarter: 2013Q3

REPORT INFORMATION
  Report Type: Report from Study
  Country: CA (occurrence: CA)
  Receive Date: 20120514
  Receipt Date: 20130916
  Transmission Date: 20140515
  Serious: Yes (Death, Other)
  Sender: FDA-Public Use
  Company Number: CA-ROCHE-1064408

PATIENT
  Sex: Female

DRUGS (12)
  1. ZELBORAF [Suspect]
     Indication: METASTATIC MALIGNANT MELANOMA
     Route: 048
     Dates: start: 2012, end: 20130222
  2. ZELBORAF [Suspect]
     Route: 048
     Dates: start: 201205
  3. ZELBORAF [Suspect]
     Route: 048
     Dates: start: 20120706
  4. ZELBORAF [Suspect]
     Route: 065
     Dates: start: 201304
  5. DEXAMETHASONE [Concomitant]
  6. VERAPAMIL [Concomitant]
  7. WELLBUTRIN [Concomitant]
  8. RABEPRAZOLE [Concomitant]
  9. NYSTATIN [Concomitant]
  10. TECTA [Concomitant]
  11. ZOPLICONE (UNK INGREDIENTS) [Concomitant]
  12. SENOKOT [Concomitant]

REACTIONS (24)
  - Disease progression [Fatal]
  - Toxicity to various agents [Unknown]
  - Confusional state [Unknown]
  - Dysphemia [Unknown]
  - Tremor [Unknown]
  - Blood potassium decreased [Not Recovered/Not Resolved]
  - Nasopharyngitis [Unknown]
  - Headache [Unknown]
  - Fatigue [Unknown]
  - Vision blurred [Unknown]
  - Influenza [Unknown]
  - Skin exfoliation [Unknown]
  - Pain in extremity [Unknown]
  - Malaise [Unknown]
  - Dry skin [Unknown]
  - Rash [Not Recovered/Not Resolved]
  - Tendonitis [Not Recovered/Not Resolved]
  - Hyperaesthesia [Not Recovered/Not Resolved]
  - Pain [Not Recovered/Not Resolved]
  - Somnolence [Not Recovered/Not Resolved]
  - Asthenia [Not Recovered/Not Resolved]
  - Neoplasm malignant [Unknown]
  - Drug effect decreased [Unknown]
  - Malaise [Not Recovered/Not Resolved]
